FAERS Safety Report 9015429 (Version 4)
Quarter: 2013Q1

REPORT INFORMATION
  Report Type: Report from Study
  Country: US (occurrence: US)
  Receive Date: 20130116
  Receipt Date: 20130228
  Transmission Date: 20140127
  Serious: Yes (Hospitalization, Other)
  Sender: FDA-Public Use
  Company Number: US-PURDUE-USA-2013-0097599

PATIENT
  Age: 56 None
  Sex: Female

DRUGS (2)
  1. OXYCONTIN (NDA 22-272) [Suspect]
     Indication: INTERVERTEBRAL DISC DEGENERATION
     Dosage: 30 MG, BID
     Route: 048
  2. OXYCODONE HCL IMMEDIATE RELEASE (91-490) [Concomitant]
     Indication: PAIN
     Dosage: UNK, SEE TEXT

REACTIONS (16)
  - Pneumonia [Recovered/Resolved]
  - Aneurysm [Unknown]
  - Unevaluable event [Recovered/Resolved]
  - Drug withdrawal syndrome [Unknown]
  - Nasopharyngitis [Recovered/Resolved]
  - Influenza [Recovered/Resolved]
  - Spinal pain [Unknown]
  - Malaise [Recovered/Resolved]
  - Asthenia [Recovered/Resolved]
  - Somnolence [Recovered/Resolved]
  - Diarrhoea [Recovered/Resolved]
  - Amnesia [Unknown]
  - Drug ineffective [Unknown]
  - Drug effect decreased [Unknown]
  - Drug tolerance [Unknown]
  - Insomnia [Unknown]
